FAERS Safety Report 21257646 (Version 1)
Quarter: 2022Q3

REPORT INFORMATION
  Report Type: Report from Study
  Country: US (occurrence: None)
  Receive Date: 20220826
  Receipt Date: 20220826
  Transmission Date: 20221027
  Serious: Yes (Other)
  Sender: FDA-Public Use
  Company Number: US-ROCHE-1856004

PATIENT
  Age: 48 Year
  Sex: Male
  Weight: 77.1 kg

DRUGS (16)
  1. COBIMETINIB [Suspect]
     Active Substance: COBIMETINIB
     Indication: Histiocytic sarcoma
     Route: 048
     Dates: start: 20150303
  2. COBIMETINIB [Suspect]
     Active Substance: COBIMETINIB
     Route: 048
     Dates: start: 20160324, end: 20161020
  3. COBIMETINIB [Suspect]
     Active Substance: COBIMETINIB
     Route: 048
     Dates: start: 20160324, end: 20160331
  4. ENALAPRIL [Concomitant]
     Active Substance: ENALAPRIL
     Route: 048
  5. ACETAMINOPHEN [Concomitant]
     Active Substance: ACETAMINOPHEN
  6. HYDROCORTISONE ACE [Concomitant]
     Route: 061
  7. DOXYCYCLINE HYCLATE [Concomitant]
     Active Substance: DOXYCYCLINE HYCLATE
     Route: 048
  8. DOCUSATE SODIUM [Concomitant]
     Active Substance: DOCUSATE SODIUM
     Route: 048
  9. BACTROBAN [Concomitant]
     Active Substance: MUPIROCIN\MUPIROCIN CALCIUM
     Route: 061
  10. ADOXA [Concomitant]
     Active Substance: DOXYCYCLINE
     Dosage: 2X A DAY X 30 DAYS
     Route: 048
  11. CEFADROXIL [Concomitant]
     Active Substance: CEFADROXIL
     Dosage: 1 CAP 2X A DAY X 30 DAYS WITH OR WITHOUT FOOD.
     Route: 048
  12. ONDANSETRON [Concomitant]
     Active Substance: ONDANSETRON
     Indication: Nausea
     Route: 048
  13. LOPERAMIDE [Concomitant]
     Active Substance: LOPERAMIDE
     Indication: Diarrhoea
     Route: 048
  14. FLUOCINONIDE [Concomitant]
     Active Substance: FLUOCINONIDE
     Route: 061
  15. ACLOVATE [Concomitant]
     Active Substance: ALCLOMETASONE DIPROPIONATE
     Route: 061
  16. CLOBETASOL [Concomitant]
     Active Substance: CLOBETASOL
     Dosage: 2X A DAY X 30 DAYS
     Route: 061

REACTIONS (4)
  - Retinal vein occlusion [Unknown]
  - Ejection fraction decreased [Recovered/Resolved]
  - Papilloedema [Unknown]
  - Retinal vascular disorder [Unknown]

NARRATIVE: CASE EVENT DATE: 20160331
